FAERS Safety Report 18107234 (Version 1)
Quarter: 2020Q3

REPORT INFORMATION
  Report Type: Report from Study
  Country: KR (occurrence: KR)
  Receive Date: 20200804
  Receipt Date: 20200804
  Transmission Date: 20201103
  Serious: Yes (Other)
  Sender: FDA-Public Use
  Company Number: KR-EMD SERONO-9178148

PATIENT
  Age: 11 Year
  Sex: Female

DRUGS (1)
  1. SAIZEN [Suspect]
     Active Substance: SOMATROPIN
     Indication: PRODUCT USED FOR UNKNOWN INDICATION
     Dates: start: 20200727

REACTIONS (1)
  - Deafness transitory [Unknown]

NARRATIVE: CASE EVENT DATE: 202007
